FAERS Safety Report 15679997 (Version 2)
Quarter: 2018Q4

REPORT INFORMATION
  Report Type: Spontaneous
  Country: GB (occurrence: GB)
  Receive Date: 20181203
  Receipt Date: 20181212
  Transmission Date: 20190205
  Serious: Yes (Other)
  Sender: FDA-Public Use
  Company Number: GB-IPSEN BIOPHARMACEUTICALS, INC.-2018-18281

PATIENT
  Age: 47 Year
  Sex: Female

DRUGS (6)
  1. SENNA [Concomitant]
     Active Substance: SENNA LEAF\SENNOSIDES\SENNOSIDES A AND B
     Dosage: BEFORE BOTULINUM TOXIN TYPE A INJECTION SHE WAS TAKING 18 ML
  2. BACLOFEN. [Concomitant]
     Active Substance: BACLOFEN
  3. SENNA [Concomitant]
     Active Substance: SENNA LEAF\SENNOSIDES\SENNOSIDES A AND B
     Dosage: AFTER BOTULINUM TOXIN TYPE , THE PATIENT HAD TO INCREASED THE DOSE OF SENNA TO 30 ML
  4. DYSPORT [Suspect]
     Active Substance: ABOBOTULINUMTOXINA
     Indication: HYPERTONIC BLADDER
     Dosage: 1000 UNITS
     Dates: start: 201706, end: 201706
  5. DYSPORT [Suspect]
     Active Substance: ABOBOTULINUMTOXINA
     Indication: OFF LABEL USE
  6. OXYBUTYNIN. [Concomitant]
     Active Substance: OXYBUTYNIN CHLORIDE
     Dosage: APPLIED OXYBUTYNIN SKIN PATCH CHANGING IT EVERY THIRD DAY
     Route: 048

REACTIONS (6)
  - Blood pressure decreased [Unknown]
  - Dizziness [Unknown]
  - Off label use [Unknown]
  - Neuromuscular toxicity [Recovering/Resolving]
  - Loss of consciousness [Unknown]
  - Fatigue [Unknown]

NARRATIVE: CASE EVENT DATE: 2017
